FAERS Safety Report 4469090-4 (Version None)
Quarter: 2004Q4

REPORT INFORMATION
  Report Type: 
  Country: None (occurrence: None)
  Receive Date: 20041001
  Receipt Date: 20040921
  Transmission Date: 20050328
  Serious: Yes (Hospitalization)
  Sender: FDA-Public Use
  Company Number: KII-2001-0012289

PATIENT
  Sex: Female

DRUGS (2)
  1. OXYCONTIN [Suspect]
     Indication: CANCER PAIN
     Dosage: 240 MG, Q12H
  2. SENOKOT [Suspect]
     Dosage: SEE TEXT

REACTIONS (2)
  - INTESTINAL OBSTRUCTION [None]
  - TREATMENT NONCOMPLIANCE [None]
